FAERS Safety Report 9240025 (Version 1)
Quarter: 2013Q2

REPORT INFORMATION
  Report Type: Spontaneous
  Country: US (occurrence: US)
  Receive Date: 20130418
  Receipt Date: 20130418
  Transmission Date: 20140414
  Serious: Yes (Other)
  Sender: FDA-Public Use
  Company Number: CHPA2013US006462

PATIENT
  Age: 77 Year
  Sex: Male

DRUGS (4)
  1. MAALOX UNKNOWN [Suspect]
     Indication: ULCER
     Dosage: UNK, PRN
     Route: 048
  2. MAALOX UNKNOWN [Suspect]
     Indication: ABDOMINAL DISCOMFORT
  3. MAALOX ANTACID [Suspect]
     Indication: ABDOMINAL DISCOMFORT
     Dosage: UNK, UNK
     Route: 048
  4. MAALOX ANTACID [Suspect]
     Indication: ULCER

REACTIONS (3)
  - Ulcer haemorrhage [Recovered/Resolved]
  - Chronic obstructive pulmonary disease [Not Recovered/Not Resolved]
  - Off label use [Unknown]
